FAERS Safety Report 14576786 (Version 1)
Quarter: 2018Q1

REPORT INFORMATION
  Report Type: Report from Study
  Country: JP (occurrence: JP)
  Receive Date: 20180227
  Receipt Date: 20180227
  Transmission Date: 20180509
  Serious: Yes (Death, Hospitalization, Other)
  Sender: FDA-Public Use
  Company Number: JP-BRISTOL-MYERS SQUIBB COMPANY-10953875

PATIENT
  Age: 37 Year
  Sex: Male

DRUGS (10)
  1. ALLOID G [Concomitant]
     Active Substance: SODIUM ALGINATE
     Indication: PRODUCT USED FOR UNKNOWN INDICATION
     Dosage: UNK
     Route: 048
     Dates: start: 19991230, end: 20000113
  2. DIFLUCAN [Concomitant]
     Active Substance: FLUCONAZOLE
     Indication: PRODUCT USED FOR UNKNOWN INDICATION
     Dosage: UNK
     Route: 048
     Dates: start: 19981025, end: 20000113
  3. KOGENATE [Concomitant]
     Active Substance: ANTIHEMOPHILIC FACTOR, HUMAN RECOMBINANT
     Indication: PRODUCT USED FOR UNKNOWN INDICATION
     Dosage: UNK
     Route: 058
     Dates: start: 19970912, end: 20000113
  4. STAVUDINE. [Suspect]
     Active Substance: STAVUDINE
     Indication: ACQUIRED IMMUNODEFICIENCY SYNDROME
     Dosage: 60 MG, QD
     Route: 048
     Dates: start: 19970930, end: 20000113
  5. ESANBUTOL                          /00022302/ [Concomitant]
     Indication: PRODUCT USED FOR UNKNOWN INDICATION
     Dosage: UNK
     Route: 048
     Dates: start: 19981101, end: 20000113
  6. OMEPRAL                            /00661201/ [Concomitant]
     Active Substance: OMEPRAZOLE
     Indication: PRODUCT USED FOR UNKNOWN INDICATION
     Dosage: UNK
     Route: 048
     Dates: start: 20000106, end: 20000113
  7. CLARITH [Concomitant]
     Active Substance: CLARITHROMYCIN
     Indication: PRODUCT USED FOR UNKNOWN INDICATION
     Dosage: UNK
     Route: 048
     Dates: start: 19981101, end: 20000113
  8. SULFAMETHOXAZOLE W/TRIMETHOPRIM [Concomitant]
     Active Substance: SULFAMETHOXAZOLE\TRIMETHOPRIM
     Indication: PRODUCT USED FOR UNKNOWN INDICATION
     Dosage: UNK
     Route: 048
     Dates: start: 19980922, end: 20000113
  9. EPIVIR [Suspect]
     Active Substance: LAMIVUDINE
     Indication: ACQUIRED IMMUNODEFICIENCY SYNDROME
     Dosage: 300 MG, UNK
     Route: 048
     Dates: start: 19970710, end: 20000113
  10. VIRACEPT [Suspect]
     Active Substance: NELFINAVIR MESYLATE
     Indication: ACQUIRED IMMUNODEFICIENCY SYNDROME
     Dosage: 2.2 G, UNK
     Route: 048
     Dates: start: 19981012, end: 20000113

REACTIONS (6)
  - Varices oesophageal [Unknown]
  - Death [Fatal]
  - Hypoalbuminaemia [Unknown]
  - Hypocholesterolaemia [Unknown]
  - Interstitial lung disease [Unknown]
  - Pancytopenia [Unknown]

NARRATIVE: CASE EVENT DATE: 19981002
